FAERS Safety Report 12666161 (Version 1)
Quarter: 2016Q3

REPORT INFORMATION
  Report Type: Spontaneous
  Country: US (occurrence: US)
  Receive Date: 20160818
  Receipt Date: 20160818
  Transmission Date: 20161109
  Serious: No
  Sender: FDA-Public Use
  Company Number: US-JAZZ-2016-US-005659

PATIENT
  Sex: Female

DRUGS (33)
  1. LIPITOR [Concomitant]
     Active Substance: ATORVASTATIN CALCIUM
  2. DOXYCYCLINE HYCLATE. [Concomitant]
     Active Substance: DOXYCYCLINE HYCLATE
  3. FLONASE [Concomitant]
     Active Substance: FLUTICASONE PROPIONATE
  4. XYREM [Suspect]
     Active Substance: SODIUM OXYBATE
     Dosage: DOSE ADJUSTMENTS
     Route: 048
  5. AMPYRA [Concomitant]
     Active Substance: DALFAMPRIDINE
  6. IMITREX [Concomitant]
     Active Substance: SUMATRIPTAN SUCCINATE
  7. PROLIA [Concomitant]
     Active Substance: DENOSUMAB
  8. WELLBUTRIN [Concomitant]
     Active Substance: BUPROPION HYDROCHLORIDE
  9. TRAMADOL. [Concomitant]
     Active Substance: TRAMADOL
  10. XYREM [Suspect]
     Active Substance: SODIUM OXYBATE
     Dosage: 4.5 G, FIRST DOSE
     Route: 048
     Dates: start: 201511
  11. XYREM [Suspect]
     Active Substance: SODIUM OXYBATE
     Dosage: 3 G, SECOND DOSE
     Dates: start: 201511
  12. MINOCYCLINE [Concomitant]
     Active Substance: MINOCYCLINE\MINOCYCLINE HYDROCHLORIDE
  13. METOPROLOL SUCCINATE. [Concomitant]
     Active Substance: METOPROLOL SUCCINATE
  14. RESTASIS [Concomitant]
     Active Substance: CYCLOSPORINE
  15. XYZAL [Concomitant]
     Active Substance: LEVOCETIRIZINE DIHYDROCHLORIDE
  16. FUROSEMIDE. [Concomitant]
     Active Substance: FUROSEMIDE
  17. CLONIDINE. [Concomitant]
     Active Substance: CLONIDINE
  18. PREMARIN [Concomitant]
     Active Substance: ESTROGENS, CONJUGATED
  19. XYREM [Suspect]
     Active Substance: SODIUM OXYBATE
     Indication: NARCOLEPSY
     Dosage: 2.25 G, BID
     Route: 048
     Dates: start: 200211, end: 200212
  20. DEXILANT [Concomitant]
     Active Substance: DEXLANSOPRAZOLE
  21. LOTEMAX [Concomitant]
     Active Substance: LOTEPREDNOL ETABONATE
  22. AVONEX [Concomitant]
     Active Substance: INTERFERON BETA-1A
  23. COZAAR [Concomitant]
     Active Substance: LOSARTAN POTASSIUM
  24. DIURETIC [Concomitant]
     Active Substance: UNSPECIFIED INGREDIENT
  25. FLUOROMETHOLONE. [Concomitant]
     Active Substance: FLUOROMETHOLONE
  26. NALTREXONE [Concomitant]
     Active Substance: NALTREXONE
  27. RECLAST [Concomitant]
     Active Substance: ZOLEDRONIC ACID
  28. TOBREX [Concomitant]
     Active Substance: TOBRAMYCIN
  29. VIVELLE-DOT [Concomitant]
     Active Substance: ESTRADIOL
  30. AMITRIPTYLINE HCL [Concomitant]
     Active Substance: AMITRIPTYLINE
  31. BACTROBAN [Concomitant]
     Active Substance: MUPIROCIN\MUPIROCIN CALCIUM
  32. NEXIUM [Concomitant]
     Active Substance: ESOMEPRAZOLE MAGNESIUM
  33. RETIN-A [Concomitant]
     Active Substance: TRETINOIN

REACTIONS (1)
  - Malaise [Unknown]
